FAERS Safety Report 9245859 (Version 2)
Quarter: 2013Q2

REPORT INFORMATION
  Report Type: Spontaneous
  Country: DE (occurrence: DE)
  Receive Date: 20130422
  Receipt Date: 20130503
  Transmission Date: 20140414
  Serious: Yes (Hospitalization)
  Sender: FDA-Public Use
  Company Number: DE-JHP PHARMACEUTICALS, LLC-JHP201300229

PATIENT
  Age: 14 Year
  Sex: Male

DRUGS (4)
  1. KETALAR [Suspect]
     Indication: ACCIDENTAL EXPOSURE TO PRODUCT
     Dosage: UNK UNK, SINGLE
  2. XYLAZINE [Suspect]
     Indication: ACCIDENTAL EXPOSURE TO PRODUCT
     Dosage: UNK UNK, SINGLE
  3. MIDAZOLAM [Suspect]
     Indication: ACCIDENTAL POISONING
  4. ETOMIDATE [Suspect]
     Indication: ACCIDENTAL POISONING
     Dosage: UNK

REACTIONS (6)
  - Accidental poisoning [Recovered/Resolved]
  - Loss of consciousness [Recovered/Resolved]
  - Dizziness [Recovered/Resolved]
  - Nightmare [Recovered/Resolved]
  - Nausea [Recovered/Resolved]
  - Vomiting [Recovered/Resolved]
